FAERS Safety Report 7117629-2 (Version None)
Quarter: 2010Q4

REPORT INFORMATION
  Report Type: 
  Country: None (occurrence: None)
  Receive Date: 20101122
  Receipt Date: 20101111
  Transmission Date: 20110411
  Serious: Yes (Hospitalization)
  Sender: FDA-Public Use
  Company Number: CH-AMGEN-CHESP2010005376

PATIENT

DRUGS (1)
  1. ENBREL [Suspect]
     Indication: PRODUCT USED FOR UNKNOWN INDICATION
     Dosage: 25 MG, UNK
     Route: 058
     Dates: start: 20090801, end: 20101001

REACTIONS (6)
  - ACUTE DISSEMINATED ENCEPHALOMYELITIS [None]
  - ACUTE HAEMORRHAGIC LEUKOENCEPHALITIS [None]
  - APHASIA [None]
  - DEMYELINATION [None]
  - EPILEPSY [None]
  - EYE MOVEMENT DISORDER [None]
